FAERS Safety Report 6858285-8 (Version None)
Quarter: 2010Q3

REPORT INFORMATION
  Report Type: 
  Country: None (occurrence: None)
  Receive Date: 20100719
  Receipt Date: 20080319
  Transmission Date: 20110219
  Serious: No
  Sender: FDA-Public Use
  Company Number: US-PFIZER INC-2008011816

PATIENT
  Sex: Male
  Weight: 132 kg

DRUGS (4)
  1. CHANTIX [Suspect]
     Indication: SMOKING CESSATION THERAPY
     Dates: start: 20080114, end: 20080101
  2. ALBUTEROL [Concomitant]
  3. MUCOMYST [Concomitant]
  4. TRAZODONE HYDROCHLORIDE [Concomitant]

REACTIONS (2)
  - DEPRESSION [None]
  - IRRITABILITY [None]
